FAERS Safety Report 15987443 (Version 2)
Quarter: 2019Q2

REPORT INFORMATION
  Report Type: Spontaneous
  Country: MX (occurrence: MX)
  Receive Date: 20190220
  Receipt Date: 20190517
  Transmission Date: 20190711
  Serious: Yes (Hospitalization)
  Sender: FDA-Public Use
  Company Number: MX-JNJFOC-20190216797

PATIENT
  Age: 9 Decade
  Sex: Female

DRUGS (1)
  1. INVOKANA DUO [Suspect]
     Active Substance: CANAGLIFLOZIN\METFORMIN HYDROCHLORIDE
     Indication: DIABETES MELLITUS
     Dosage: STRENGTH 150 MG/850MG
     Route: 048

REACTIONS (4)
  - Hospitalisation [Unknown]
  - Product physical issue [Unknown]
  - Product packaging issue [Unknown]
  - Product odour abnormal [Unknown]

NARRATIVE: CASE EVENT DATE: 201901
